FAERS Safety Report 9990852 (Version 1)
Quarter: 2014Q1

REPORT INFORMATION
  Report Type: Report from Study
  Country: US (occurrence: US)
  Receive Date: 20140310
  Receipt Date: 20140310
  Transmission Date: 20141002
  Serious: No
  Sender: FDA-Public Use
  Company Number: US-ABBVIE-13P-163-1135018-00

PATIENT
  Age: 58 Year
  Sex: Male

DRUGS (6)
  1. HUMIRA [Suspect]
     Indication: COLITIS ULCERATIVE
     Dates: start: 20130702
  2. PREDNISONE [Concomitant]
     Indication: PRODUCT USED FOR UNKNOWN INDICATION
     Dosage: EVERY OTHER DAY FOR NEXT WEEK AND A HALF THEN WILL BE OFF
  3. CLONAZEPAM [Concomitant]
     Indication: SLEEP DISORDER THERAPY
     Dosage: AT HOURS OF SLEEP
  4. PROZAC [Concomitant]
     Indication: DEPRESSION
  5. CALCIUM + VITAMIN D [Concomitant]
     Indication: PRODUCT USED FOR UNKNOWN INDICATION
  6. MULTIVITAMIN [Concomitant]
     Indication: PRODUCT USED FOR UNKNOWN INDICATION

REACTIONS (2)
  - Injection site bruising [Recovered/Resolved]
  - Injection site bruising [Recovered/Resolved]
